FAERS Safety Report 17397011 (Version 1)
Quarter: 2020Q1

REPORT INFORMATION
  Report Type: Spontaneous
  Country: GB (occurrence: GB)
  Receive Date: 20200210
  Receipt Date: 20200210
  Transmission Date: 20200409
  Serious: Yes (Hospitalization, Disabling, Other)
  Sender: FDA-Public Use
  Company Number: GB-LEO PHARMA-327846

PATIENT
  Age: 30 Year
  Sex: Male
  Weight: 74 kg

DRUGS (2)
  1. ELOCON [Suspect]
     Active Substance: MOMETASONE FUROATE
     Indication: ECZEMA
     Dosage: INITIALLY 7 DAYS. THEN ON AND OFF WHEN NEEDED TO REDUCE ^ECZEMA FLARES^. THEN MORE FREQUENTLY.
     Route: 061
     Dates: start: 20180718, end: 20200105
  2. PROTOPIC [Suspect]
     Active Substance: TACROLIMUS
     Indication: ECZEMA
     Dosage: INITIALLY 7 DAYS. THEN ON AND OFF TO REDUCE ^ECZEMA FLARES^. THEN MORE FREQUENTLY.
     Route: 061
     Dates: start: 20170712, end: 20200103

REACTIONS (5)
  - Steroid withdrawal syndrome [Unknown]
  - Skin irritation [Unknown]
  - Peripheral swelling [Unknown]
  - Eye swelling [Unknown]
  - Erythema [Not Recovered/Not Resolved]

NARRATIVE: CASE EVENT DATE: 20200105
